FAERS Safety Report 25943112 (Version 1)
Quarter: 2025Q4

REPORT INFORMATION
  Report Type: Spontaneous
  Country: US (occurrence: None)
  Receive Date: 20251020
  Receipt Date: 20251020
  Transmission Date: 20260117
  Serious: No
  Sender: FDA-CTU
  Company Number: None

PATIENT
  Age: 76 Year
  Sex: Female

DRUGS (1)
  1. XDEMVY [Suspect]
     Active Substance: LOTILANER
     Dosage: FREQUENCY : TWICE A DAY;?
     Route: 047

REACTIONS (5)
  - Eye pain [None]
  - Eye irritation [None]
  - Foreign body sensation in eyes [None]
  - Ocular discomfort [None]
  - Vision blurred [None]

NARRATIVE: CASE EVENT DATE: 20251020
